FAERS Safety Report 18237358 (Version 1)
Quarter: 2020Q3

REPORT INFORMATION
  Report Type: Report from Study
  Country: IT (occurrence: IT)
  Receive Date: 20200907
  Receipt Date: 20200907
  Transmission Date: 20201103
  Serious: Yes (Death)
  Sender: FDA-Public Use
  Company Number: IT-TEVA-2020-IT-1824636

PATIENT
  Sex: Male

DRUGS (12)
  1. SALINE [Concomitant]
     Active Substance: SODIUM CHLORIDE
     Indication: VEHICLE SOLUTION USE
     Dosage: ADMINISTERED OVER 24 HOURS ON DAYS 1 TO 5
     Route: 042
  2. POTASSIUM CHLORIDE. [Concomitant]
     Active Substance: POTASSIUM CHLORIDE
     Indication: FLUID REPLACEMENT
     Dosage: DISSOLVED IN SODIUM CHLORIDE AND ADMINISTERED OVER 24 HOURS ON DAYS 1 TO 5
     Route: 042
  3. DEXAMETHASONE. [Concomitant]
     Active Substance: DEXAMETHASONE
     Indication: PREMEDICATION
     Dosage: ADMINISTERED OVER 30 MINUTES ON DAYS 1 TO 5
     Route: 042
  4. GRANISETRON [Concomitant]
     Active Substance: GRANISETRON
     Indication: PREMEDICATION
     Dosage: ADMINISTERED OVER 30 MINUTES ON DAYS 1 TO 5
     Route: 042
  5. DEXAMETHASONE. [Concomitant]
     Active Substance: DEXAMETHASONE
     Dosage: ADMINISTERED OVER 15 MINUTES ON DAY 1, PRIOR TO BLEOMYCIN
     Route: 042
  6. RANITIDINE. [Concomitant]
     Active Substance: RANITIDINE
     Indication: PREMEDICATION
     Dosage: ADMINISTERED OVER 30 MINUTES ON DAYS 1 TO 5
     Route: 042
  7. MAGNESIUM SULFATE. [Concomitant]
     Active Substance: MAGNESIUM SULFATE
     Indication: FLUID REPLACEMENT
     Dosage: DISSOLVED IN SODIUM CHLORIDE AND ADMINISTERED OVER 24 HOURS ON DAYS 1 TO 5
     Route: 042
  8. FOSAPREPITANT [Concomitant]
     Active Substance: FOSAPREPITANT
     Indication: PREMEDICATION
     Dosage: ADMINISTERED OVER 30 MINUTES ON DAYS 1, PRIOR TO BLEOMYCIN
     Route: 042
  9. ETOPOSIDE. [Suspect]
     Active Substance: ETOPOSIDE
     Indication: GERM CELL NEOPLASM
     Dosage: ADMINISTERED OVER 60 MINUTES ON DAYS 1 TO 5, AS PART OF THE MODIFIED?BEP (MBEP) REGIMEN
     Route: 042
  10. CISPLATIN. [Suspect]
     Active Substance: CISPLATIN
     Indication: GERM CELL NEOPLASM
     Dosage: ADMINISTERED OVER 3 HOURS ON DAYS 1 TO 5, AS PART OF THE MODIFIED?BEP (MBEP) REGIMEN
     Route: 042
  11. BLEOMYCIN [Suspect]
     Active Substance: BLEOMYCIN SULFATE
     Dosage: CONTINUOUS INFUSION ADMINISTERED OVER 12 HOURS FROM DAYS 1 TO 3, AS PART OF THE MBEP REGIMEN
     Route: 041
  12. BLEOMYCIN [Suspect]
     Active Substance: BLEOMYCIN SULFATE
     Indication: GERM CELL NEOPLASM
     Dosage: IV PUSH ON DAY 1, AS PART OF THE MODIFIED?BEP (MBEP) REGIMEN
     Route: 042

REACTIONS (1)
  - Cerebrovascular accident [Fatal]
